FAERS Safety Report 17366426 (Version 1)
Quarter: 2020Q1

REPORT INFORMATION
  Report Type: Report from Study
  Country: IS (occurrence: IS)
  Receive Date: 20200204
  Receipt Date: 20200204
  Transmission Date: 20200409
  Serious: Yes (Life-Threatening, Hospitalization)
  Sender: FDA-Public Use
  Company Number: IS-MYLANLABS-2020M1012087

PATIENT
  Age: 35 Year
  Sex: Female

DRUGS (1)
  1. ACETYLCYSTEINE. [Suspect]
     Active Substance: ACETYLCYSTEINE
     Indication: PRODUCT USED FOR UNKNOWN INDICATION
     Dosage: 600 MILLIGRAM, BID
     Dates: start: 20190712

REACTIONS (5)
  - Cerebral haemorrhage [Recovering/Resolving]
  - Nausea [Recovered/Resolved]
  - Amyloidosis [Recovering/Resolving]
  - Headache [Recovered/Resolved]
  - Paresis [Recovered/Resolved]

NARRATIVE: CASE EVENT DATE: 20190718
